FAERS Safety Report 7475880-6 (Version None)
Quarter: 2011Q2

REPORT INFORMATION
  Report Type: 
  Country: None (occurrence: None)
  Receive Date: 20110512
  Receipt Date: 20110428
  Transmission Date: 20111010
  Serious: Yes (Disabling)
  Sender: FDA-Public Use
  Company Number: FI-JNJFOC-20110412093

PATIENT
  Age: 82 Year
  Sex: Male

DRUGS (4)
  1. PULMICORT [Concomitant]
     Route: 065
  2. WARFARIN SODIUM [Concomitant]
     Route: 065
  3. LEVOFLOXACIN [Suspect]
     Indication: PNEUMONIA
     Route: 048
  4. TENOBLOCK [Concomitant]
     Route: 065

REACTIONS (3)
  - DISCOMFORT [None]
  - PAIN IN EXTREMITY [None]
  - HYPOKINESIA [None]
